FAERS Safety Report 14323511 (Version 5)
Quarter: 2019Q3

REPORT INFORMATION
  Report Type: Report from Study
  Country: None (occurrence: US)
  Receive Date: 20171226
  Receipt Date: 20190808
  Transmission Date: 20191004
  Serious: Yes (Hospitalization, Other)
  Sender: FDA-Public Use
  Company Number: US-ABBVIE-16K-163-1783883-00

PATIENT
  Sex: Male
  Weight: 88.53 kg

DRUGS (8)
  1. TYLENOL [Concomitant]
     Active Substance: ACETAMINOPHEN
     Indication: NASOPHARYNGITIS
  2. CLONAZEPAM. [Concomitant]
     Active Substance: CLONAZEPAM
     Indication: ANXIETY
  3. KRILL OIL [Concomitant]
     Active Substance: DIETARY SUPPLEMENT\KRILL OIL
     Indication: CARDIOVASCULAR EVENT PROPHYLAXIS
  4. CLONAZEPAM. [Concomitant]
     Active Substance: CLONAZEPAM
     Indication: INSOMNIA
  5. LIALDA [Concomitant]
     Active Substance: MESALAMINE
     Indication: CROHN^S DISEASE
  6. HUMIRA [Suspect]
     Active Substance: ADALIMUMAB
     Indication: CROHN^S DISEASE
     Route: 058
     Dates: start: 2016, end: 2016
  7. HUMIRA [Suspect]
     Active Substance: ADALIMUMAB
     Route: 058
     Dates: start: 2017
  8. IRON [Concomitant]
     Active Substance: IRON
     Indication: MINERAL SUPPLEMENTATION

REACTIONS (16)
  - Peritonitis [Recovered/Resolved]
  - Hernia [Not Recovered/Not Resolved]
  - Stomal hernia [Unknown]
  - Intestinal perforation [Recovered/Resolved]
  - Incisional hernia [Not Recovered/Not Resolved]
  - Acne [Recovered/Resolved]
  - Nasopharyngitis [Recovering/Resolving]
  - Psoriasis [Unknown]
  - Secretion discharge [Unknown]
  - Psoriasis [Recovered/Resolved]
  - Crohn^s disease [Recovered/Resolved]
  - Muscle fatigue [Unknown]
  - Myalgia [Recovered/Resolved]
  - Weight increased [Not Recovered/Not Resolved]
  - Skin papilloma [Unknown]
  - Hypertension [Unknown]

NARRATIVE: CASE EVENT DATE: 2016
